FAERS Safety Report 8764074 (Version 1)
Quarter: 2012Q4

REPORT INFORMATION
  Report Type: 
  Country: FR (occurrence: FR)
  Receive Date: 20120830
  Receipt Date: 20120830
  Transmission Date: 20130627
  Serious: Yes (Hospitalization)
  Sender: FDA-Public Use
  Company Number: FR-PFIZER INC-2012212916

PATIENT
  Age: 71 Year
  Sex: Male

DRUGS (11)
  1. CORDARONE [Suspect]
     Indication: ATRIAL FIBRILLATION
     Dosage: 100 mg, daily
     Route: 048
     Dates: end: 20120422
  2. GUTRON [Concomitant]
     Indication: ORTHOSTATIC HYPOTENSION
     Dosage: UNK
     Dates: end: 20120422
  3. GUTRON [Concomitant]
     Dosage: 3 DF, daily
     Dates: start: 20120423
  4. GUTRON [Concomitant]
     Dosage: 5 DF, daily
  5. FLUDROCORTISONE [Concomitant]
     Indication: ORTHOSTATIC HYPOTENSION
     Dosage: UNK
  6. KARDEGIC [Concomitant]
     Indication: PROPHYLAXIS
     Dosage: UNK
  7. PRAVASTATINE [Concomitant]
     Indication: CARDIOVASCULAR EVENT PROPHYLAXIS
     Dosage: UNK
  8. MYOLASTAN [Concomitant]
     Indication: BACK PAIN
     Dosage: UNK
     Dates: start: 20120421, end: 201206
  9. FLECTOR TISSUGEL [Concomitant]
     Indication: BACK PAIN
     Dosage: UNK
     Dates: start: 20120421, end: 201205
  10. DAFALGAN CODEINE [Concomitant]
     Indication: BACK PAIN
     Dosage: UNK
     Dates: start: 20120421, end: 20120520
  11. FORLAX [Concomitant]
     Indication: CONSTIPATION
     Dosage: UNK
     Dates: start: 20120421

REACTIONS (2)
  - Bradycardia [Recovered/Resolved]
  - Arthralgia [Unknown]
